FAERS Safety Report 8883869 (Version 1)
Quarter: 2012Q4

REPORT INFORMATION
  Report Type: 
  Country: US (occurrence: US)
  Receive Date: 20121102
  Receipt Date: 20121102
  Transmission Date: 20130627
  Serious: No
  Sender: FDA-Public Use
  Company Number: US-ASTRAZENECA-2012SE09425

PATIENT
  Age: 83 Year
  Sex: Male
  Weight: 69.9 kg

DRUGS (6)
  1. CRESTOR [Suspect]
     Indication: BLOOD CHOLESTEROL ABNORMAL
     Route: 048
  2. FAMOTIDINE [Concomitant]
  3. AMLODIPINE [Concomitant]
  4. METOPROLOL [Concomitant]
  5. RAMIPRIL [Concomitant]
  6. XALATAN [Concomitant]

REACTIONS (2)
  - Infrequent bowel movements [Unknown]
  - Constipation [Unknown]
